FAERS Safety Report 5220168-7 (Version None)
Quarter: 2006Q4

REPORT INFORMATION
  Report Type: 
  Country: None (occurrence: None)
  Receive Date: 20061210
  Receipt Date: 20060825
  Transmission Date: 20070319
  Serious: Yes (Life-Threatening)
  Sender: FDA-Public Use
  Company Number: PHEH2006US10923

PATIENT
  Age: 39 Year
  Sex: Male

DRUGS (2)
  1. LAMISIL [Suspect]
     Dosage: QQ, ORAL
     Route: 048
     Dates: start: 20060725, end: 20060815
  2. TYLENOL [Concomitant]

REACTIONS (1)
  - RASH [None]
